FAERS Safety Report 11312332 (Version 2)
Quarter: 2015Q3

REPORT INFORMATION
  Report Type: Spontaneous
  Country: US (occurrence: US)
  Receive Date: 20150727
  Receipt Date: 20150805
  Transmission Date: 20151125
  Serious: Yes (Hospitalization)
  Sender: FDA-Public Use
  Company Number: US-OTSUKA-2015_006040

PATIENT

DRUGS (1)
  1. ABILIFY MAINTENA [Suspect]
     Active Substance: ARIPIPRAZOLE
     Indication: SCHIZOPHRENIA
     Dosage: 400 MG, QM
     Route: 030
     Dates: start: 20150708

REACTIONS (5)
  - Abnormal behaviour [Unknown]
  - Hyperhidrosis [Unknown]
  - Drug ineffective [Unknown]
  - Constipation [Unknown]
  - Insomnia [Not Recovered/Not Resolved]
